FAERS Safety Report 6863477-8 (Version None)
Quarter: 2010Q3

REPORT INFORMATION
  Report Type: 
  Country: None (occurrence: None)
  Receive Date: 20100719
  Receipt Date: 20100707
  Transmission Date: 20110219
  Serious: Yes (Hospitalization)
  Sender: FDA-Public Use
  Company Number: CIP10001597

PATIENT
  Sex: Female

DRUGS (1)
  1. ASACOL [Suspect]
     Dosage: 800 MG THREE TIMES A DAY, ORAL
     Route: 048

REACTIONS (2)
  - ILEOSTOMY [None]
  - MEDICATION RESIDUE [None]
